FAERS Safety Report 23246967 (Version 2)
Quarter: 2023Q4

REPORT INFORMATION
  Report Type: Report from Study
  Country: CA (occurrence: CA)
  Receive Date: 20231130
  Receipt Date: 20231208
  Transmission Date: 20240110
  Serious: Yes (Other)
  Sender: FDA-Public Use
  Company Number: CA-Orion Corporation ORION PHARMA-TREX2023-0281

PATIENT
  Age: 27 Year
  Sex: Male

DRUGS (3)
  1. METHOTREXATE SODIUM [Interacting]
     Active Substance: METHOTREXATE SODIUM
     Indication: Psoriasis
     Dosage: UNK
     Route: 065
     Dates: start: 202310
  2. CLOZAPINE [Interacting]
     Active Substance: CLOZAPINE
     Indication: Schizophrenia
     Dosage: 100 MG, 1X/DAY
     Route: 065
     Dates: start: 20231011, end: 20231115
  3. CLOZAPINE [Interacting]
     Active Substance: CLOZAPINE
     Dosage: UNK
     Dates: start: 202311, end: 20231120

REACTIONS (3)
  - Drug interaction [Unknown]
  - Myelosuppression [Unknown]
  - Neutrophil count decreased [Unknown]

NARRATIVE: CASE EVENT DATE: 20231001
